FAERS Safety Report 9523935 (Version 1)
Quarter: 2013Q3

REPORT INFORMATION
  Report Type: Spontaneous
  Country: US (occurrence: None)
  Receive Date: 20130912
  Receipt Date: 20130912
  Transmission Date: 20140515
  Serious: No
  Sender: FDA-Public Use
  Company Number: None

PATIENT
  Age: 63 Year
  Sex: Female

DRUGS (6)
  1. AFINITOR [Suspect]
     Indication: RENAL CELL CARCINOMA
     Dosage: 1/2 TAB (5MG) QD PO
     Route: 048
     Dates: start: 20130830, end: 20130907
  2. LABETALOL [Suspect]
  3. AMLODIPINE [Suspect]
  4. HYDRALAZINE [Suspect]
  5. SYNTHROID [Suspect]
  6. RENA-VITE [Suspect]

REACTIONS (1)
  - Infection [None]
